FAERS Safety Report 10559453 (Version 1)
Quarter: 2014Q4

REPORT INFORMATION
  Report Type: Spontaneous
  Country: US (occurrence: None)
  Receive Date: 20141031
  Receipt Date: 20141031
  Transmission Date: 20150529
  Serious: Yes (Death)
  Sender: FDA-Public Use
  Company Number: None

PATIENT
  Age: 66 Year
  Sex: Female
  Weight: 100 kg

DRUGS (1)
  1. PRADAXA [Suspect]
     Active Substance: DABIGATRAN ETEXILATE MESYLATE
     Indication: ATRIAL FIBRILLATION
     Dosage: LAST FILLED 8/26/14 AT WALMART 1 CAPSULE BID ORAL
     Route: 048

REACTIONS (25)
  - Shock [None]
  - Mouth haemorrhage [None]
  - Anaemia [None]
  - Hepatic failure [None]
  - Cerebrovascular accident [None]
  - Chronic obstructive pulmonary disease [None]
  - Cardio-respiratory arrest [None]
  - Coagulopathy [None]
  - Acute kidney injury [None]
  - Metabolic acidosis [None]
  - Vomiting [None]
  - Asthenia [None]
  - Pulseless electrical activity [None]
  - Cardiogenic shock [None]
  - Cardiac arrest [None]
  - Haemorrhage [None]
  - Gastrointestinal haemorrhage [None]
  - Oesophageal stenosis [None]
  - Hypovolaemic shock [None]
  - Deep vein thrombosis [None]
  - Large intestinal obstruction [None]
  - Disseminated intravascular coagulation [None]
  - Hypertension [None]
  - Abdominal pain [None]
  - Dyspnoea [None]

NARRATIVE: CASE EVENT DATE: 20140921
